FAERS Safety Report 11885397 (Version 1)
Quarter: 2015Q4

REPORT INFORMATION
  Report Type: Spontaneous
  Country: US (occurrence: None)
  Receive Date: 20151231
  Receipt Date: 20151231
  Transmission Date: 20160305
  Serious: Yes (Hospitalization)
  Sender: FDA-Public Use
  Company Number: None

PATIENT
  Age: 69 Year
  Sex: Male

DRUGS (1)
  1. LINEZOLID. [Suspect]
     Active Substance: LINEZOLID
     Indication: THROMBOCYTOPENIA
     Route: 048
     Dates: start: 20151120, end: 20151205

REACTIONS (3)
  - Thrombocytopenia [None]
  - Sepsis [None]
  - Liver disorder [None]

NARRATIVE: CASE EVENT DATE: 20151205
